FAERS Safety Report 4887631-X (Version None)
Quarter: 2006Q1

REPORT INFORMATION
  Report Type: 
  Country: None (occurrence: None)
  Receive Date: 20060119
  Receipt Date: 20060119
  Transmission Date: 20060701
  Serious: Yes (Other)
  Sender: FDA-Public Use
  Company Number: None

PATIENT
  Age: 56 Year

DRUGS (1)
  1. TRIMETHOPRIM + SULFAMETHOXAZOLE [Suspect]
     Dosage: 2 TABLETS TWICE PER WEEK
     Dates: start: 20041218, end: 20051031

REACTIONS (1)
  - THROMBOCYTOPENIA [None]
